FAERS Safety Report 5136318-7 (Version None)
Quarter: 2006Q4

REPORT INFORMATION
  Report Type: 
  Country: None (occurrence: None)
  Receive Date: 20061027
  Receipt Date: 20061018
  Transmission Date: 20070319
  Serious: Yes (Other)
  Sender: FDA-Public Use
  Company Number: GR-GLAXOSMITHKLINE-B0443756A

PATIENT
  Age: 28 Year
  Sex: Male

DRUGS (1)
  1. ACYCLOVIR [Suspect]
     Indication: VARICELLA
     Dosage: 340MGM2 SEE DOSAGE TEXT
     Route: 042

REACTIONS (5)
  - BLOOD CREATININE INCREASED [None]
  - HAEMATURIA [None]
  - PROTEINURIA [None]
  - RENAL FAILURE ACUTE [None]
  - RENAL PAIN [None]
